FAERS Safety Report 19507394 (Version 2)
Quarter: 2022Q4

REPORT INFORMATION
  Report Type: Spontaneous
  Country: DE (occurrence: DE)
  Receive Date: 20210708
  Receipt Date: 20221101
  Transmission Date: 20230113
  Serious: Yes (Hospitalization)
  Sender: FDA-Public Use
  Company Number: DE-ADRED-06662-01

PATIENT
  Age: 86 Year
  Sex: Female

DRUGS (12)
  1. SPIRONOLACTONE [Suspect]
     Active Substance: SPIRONOLACTONE
     Indication: Product used for unknown indication
     Dosage: 25 MILLIGRAM DAILY; 1-0-0-0
     Route: 048
  2. XIPAMIDE [Suspect]
     Active Substance: XIPAMIDE
     Indication: Product used for unknown indication
     Dosage: 5 MILLIGRAM DAILY; 10 MG,  0.5-0-0-0
     Route: 048
  3. TORSEMIDE [Suspect]
     Active Substance: TORSEMIDE
     Indication: Product used for unknown indication
     Dosage: 10 MG, 2-2-0-0:UNIT DOSE:40MILLIGRAM
     Route: 048
  4. PHENPROCOUMON [Concomitant]
     Active Substance: PHENPROCOUMON
     Indication: Product used for unknown indication
     Dosage: 3 MG, ACCORDING TO INR
     Route: 048
  5. AMLODIPINE BESYLATE [Concomitant]
     Active Substance: AMLODIPINE BESYLATE
     Indication: Product used for unknown indication
     Dosage: 10 MILLIGRAM DAILY; 1-0-0-0
     Route: 048
  6. CANDESARTAN [Concomitant]
     Active Substance: CANDESARTAN
     Indication: Product used for unknown indication
     Dosage: 32 MILLIGRAM DAILY; 8 MG, 2-0-2-0, UNIT DOSE:16MILLIGRAM
     Route: 048
  7. RISPERIDONE [Concomitant]
     Active Substance: RISPERIDONE
     Indication: Product used for unknown indication
     Dosage: 0.25 MG, 0-0-1-2:UNIT DOSE:3DOSAGEFORM
     Route: 048
  8. NEBIVOLOL [Concomitant]
     Active Substance: NEBIVOLOL
     Indication: Product used for unknown indication
     Dosage: 2.5 MG, 1-1-0-0,UNIT DOSE:5MILLIGRAM
     Route: 048
  9. ALLOPURINOL [Concomitant]
     Active Substance: ALLOPURINOL
     Indication: Product used for unknown indication
     Dosage: 100 MILLIGRAM DAILY;  0-0-1-0
     Route: 048
  10. Eisen(II)-sulfat [Concomitant]
     Indication: Product used for unknown indication
     Dosage: 100 MILLIGRAM DAILY; 1-0-0-0
     Route: 048
  11. URAPIDIL [Concomitant]
     Active Substance: URAPIDIL
     Indication: Product used for unknown indication
     Dosage: 120 MILLIGRAM DAILY; 1-0-1-0
     Route: 048
  12. MOXONIDINE [Concomitant]
     Active Substance: MOXONIDINE
     Indication: Product used for unknown indication
     Dosage: .4 MILLIGRAM DAILY; 1-0-1-0
     Route: 048

REACTIONS (4)
  - Renal impairment [Unknown]
  - Product monitoring error [Unknown]
  - Product prescribing error [Unknown]
  - Acute kidney injury [Unknown]

NARRATIVE: CASE EVENT DATE: 20210428
